FAERS Safety Report 15183073 (Version 2)
Quarter: 2018Q3

REPORT INFORMATION
  Report Type: Report from Study
  Country: CN (occurrence: CN)
  Receive Date: 20180723
  Receipt Date: 20180808
  Transmission Date: 20181010
  Serious: Yes (Death, Hospitalization)
  Sender: FDA-Public Use
  Company Number: CN-BAYER-2018-127988

PATIENT
  Age: 54 Year
  Sex: Male

DRUGS (1)
  1. NEXAVAR [Suspect]
     Active Substance: SORAFENIB
     Indication: HEPATOCELLULAR CARCINOMA
     Dosage: 0.4 G, BID
     Route: 048
     Dates: start: 20180621, end: 20180707

REACTIONS (4)
  - Decreased appetite [Not Recovered/Not Resolved]
  - Death [Fatal]
  - Asthenia [Not Recovered/Not Resolved]
  - Intensive care [Not Recovered/Not Resolved]

NARRATIVE: CASE EVENT DATE: 201807
